FAERS Safety Report 9412078 (Version 1)
Quarter: 2013Q3

REPORT INFORMATION
  Report Type: Spontaneous
  Country: US (occurrence: None)
  Receive Date: 20130719
  Receipt Date: 20130719
  Transmission Date: 20140515
  Serious: Yes (Hospitalization)
  Sender: FDA-Public Use
  Company Number: None

PATIENT
  Age: 38 Year
  Sex: Male
  Weight: 58.9 kg

DRUGS (1)
  1. KETOROLAC [Suspect]
     Route: 042

REACTIONS (2)
  - Renal failure acute [None]
  - Drug hypersensitivity [None]
